FAERS Safety Report 6225153-4 (Version None)
Quarter: 2009Q2

REPORT INFORMATION
  Report Type: 
  Country: None (occurrence: None)
  Receive Date: 20090612
  Receipt Date: 20090407
  Transmission Date: 20091009
  Serious: No
  Sender: FDA-Public Use
  Company Number: US-ABBOTT-09P-163-0567197-00

PATIENT
  Sex: Male
  Weight: 115.77 kg

DRUGS (11)
  1. HUMIRA [Suspect]
     Indication: ANKYLOSING SPONDYLITIS
     Route: 058
     Dates: start: 20090323
  2. HUMIRA [Suspect]
     Indication: RHEUMATOID ARTHRITIS
  3. HUMIRA [Suspect]
     Indication: CROHN'S DISEASE
  4. ATENOLOL [Concomitant]
     Indication: DRUG USE FOR UNKNOWN INDICATION
  5. LISINOPRIL [Concomitant]
     Indication: DRUG USE FOR UNKNOWN INDICATION
  6. OMEPRAZOLE [Concomitant]
     Indication: DRUG USE FOR UNKNOWN INDICATION
  7. FLOMAX [Concomitant]
     Indication: DRUG USE FOR UNKNOWN INDICATION
  8. CELEBREX [Concomitant]
     Indication: DRUG USE FOR UNKNOWN INDICATION
  9. OXYCONTIN [Concomitant]
     Indication: DRUG USE FOR UNKNOWN INDICATION
  10. LORTAB [Concomitant]
     Indication: DRUG USE FOR UNKNOWN INDICATION
  11. AMLODIPINE [Concomitant]
     Indication: DRUG USE FOR UNKNOWN INDICATION

REACTIONS (3)
  - ABDOMINAL PAIN UPPER [None]
  - DYSURIA [None]
  - RASH MACULAR [None]
